FAERS Safety Report 4476564-9 (Version None)
Quarter: 2004Q4

REPORT INFORMATION
  Report Type: 
  Country: None (occurrence: None)
  Receive Date: 20041012
  Receipt Date: 20041001
  Transmission Date: 20050328
  Serious: Yes (Other)
  Sender: FDA-Public Use
  Company Number: 163-20785-04100132

PATIENT

DRUGS (1)
  1. THALOMID [Suspect]
     Indication: HEPATIC NEOPLASM MALIGNANT NON-RESECTABLE
     Dosage: 200MG QHS/WK1, 400MG QHS/WK2, 600MG QHS/WK3, 800MG QHS/WK4, 1000MG QHS/WK5, ORAL
     Route: 048

REACTIONS (22)
  - ARRHYTHMIA SUPRAVENTRICULAR [None]
  - ARTHRALGIA [None]
  - ASCITES [None]
  - ASTHENIA [None]
  - ATRIAL FIBRILLATION [None]
  - ATRIAL FLUTTER [None]
  - CONSTIPATION [None]
  - DEPRESSED LEVEL OF CONSCIOUSNESS [None]
  - DYSPNOEA [None]
  - FATIGUE [None]
  - GRANULOCYTES ABNORMAL [None]
  - HYPOKALAEMIA [None]
  - LETHARGY [None]
  - MALAISE [None]
  - NEUROPATHY [None]
  - NEUTROPHIL COUNT ABNORMAL [None]
  - OEDEMA [None]
  - PERIPHERAL SENSORY NEUROPATHY [None]
  - TREMOR [None]
  - WHITE BLOOD CELL COUNT DECREASED [None]
  - WHITE BLOOD CELL DISORDER [None]
  - WOUND INFECTION [None]
